FAERS Safety Report 24283949 (Version 1)
Quarter: 2024Q3

REPORT INFORMATION
  Report Type: Spontaneous
  Country: TR (occurrence: TR)
  Receive Date: 20240905
  Receipt Date: 20240905
  Transmission Date: 20241017
  Serious: Yes (Other)
  Sender: GRANULES INDIA
  Company Number: TR-GRANULES-TR-2024GRALIT00383

PATIENT
  Age: 53 Year
  Sex: Male

DRUGS (1)
  1. SERTRALINE HYDROCHLORIDE [Suspect]
     Active Substance: SERTRALINE HYDROCHLORIDE
     Indication: Major depression
     Route: 065

REACTIONS (2)
  - Bell^s palsy [Recovering/Resolving]
  - Drug ineffective [Unknown]
